FAERS Safety Report 14991609 (Version 1)
Quarter: 2018Q2

REPORT INFORMATION
  Report Type: Report from Study
  Country: JP (occurrence: JP)
  Receive Date: 20180608
  Receipt Date: 20180608
  Transmission Date: 20180711
  Serious: Yes (Other)
  Sender: FDA-Public Use
  Company Number: JP-SA-2018SA057803

PATIENT
  Age: 40 Year
  Sex: Female
  Weight: 52.4 kg

DRUGS (2)
  1. PLERIXAFOR [Suspect]
     Active Substance: PLERIXAFOR
     Indication: HAEMATOPOIETIC STEM CELL MOBILISATION
  2. PLERIXAFOR [Suspect]
     Active Substance: PLERIXAFOR
     Indication: STEM CELL TRANSPLANT
     Dosage: 0.24 MG/KG
     Route: 058
     Dates: start: 20170730, end: 20170730

REACTIONS (2)
  - Diarrhoea [Recovered/Resolved]
  - Hypokalaemia [Recovered/Resolved]

NARRATIVE: CASE EVENT DATE: 20170731
